FAERS Safety Report 26127202 (Version 1)
Quarter: 2025Q4

REPORT INFORMATION
  Report Type: Spontaneous
  Country: IN (occurrence: IN)
  Receive Date: 20251205
  Receipt Date: 20251205
  Transmission Date: 20260117
  Serious: Yes (Other)
  Sender: ADMA BIOLOGICS
  Company Number: IN-ADMA BIOLOGICS INC.-IN-2025ADM000378

PATIENT

DRUGS (1)
  1. HUMAN IMMUNOGLOBULIN G [Suspect]
     Active Substance: HUMAN IMMUNOGLOBULIN G
     Indication: Acute respiratory distress syndrome
     Dosage: UNK UNK, UNK
     Route: 042

REACTIONS (2)
  - Acute kidney injury [Unknown]
  - Off label use [Unknown]
